FAERS Safety Report 4310230-5 (Version None)
Quarter: 2004Q1

REPORT INFORMATION
  Report Type: 
  Country: None (occurrence: None)
  Receive Date: 20040301
  Receipt Date: 20031230
  Transmission Date: 20041129
  Serious: No
  Sender: FDA-Public Use
  Company Number: WAES 0312USA02732

PATIENT
  Age: 60 Year
  Sex: Female

DRUGS (12)
  1. ZETIA [Suspect]
     Indication: BLOOD CHOLESTEROL INCREASED
     Dosage: 10 MG/DAILY/PO
     Route: 048
     Dates: start: 20030930
  2. CORGARD [Concomitant]
  3. NEXIUM [Concomitant]
  4. PREMARIN [Concomitant]
  5. RESTASIS [Concomitant]
  6. SYNTHROID [Concomitant]
  7. TRAVATAN [Concomitant]
  8. CHLORZOXAZONE [Concomitant]
  9. IBUPROFEN [Concomitant]
  10. IBUPROFEN [Concomitant]
  11. MECLIZINE [Concomitant]
  12. PSEUDOEPHEDRINE HYDROCHLORIDE [Concomitant]

REACTIONS (1)
  - OEDEMA PERIPHERAL [None]
